FAERS Safety Report 8413780-5 (Version None)
Quarter: 2012Q2

REPORT INFORMATION
  Report Type: 
  Country: None (occurrence: None)
  Receive Date: 20120605
  Receipt Date: 20120529
  Transmission Date: 20120825
  Serious: Yes (Other)
  Sender: FDA-Public Use
  Company Number: AR-ROCHE-1074645

PATIENT
  Sex: Female

DRUGS (1)
  1. LUCENTIS [Suspect]
     Indication: MACULOPATHY
     Dosage: 1 AMPOULE
     Route: 050
     Dates: start: 20100101

REACTIONS (10)
  - CATARACT [None]
  - VISION BLURRED [None]
  - ASTHENOPIA [None]
  - VISUAL ACUITY REDUCED [None]
  - EYE SWELLING [None]
  - FOREIGN BODY SENSATION IN EYES [None]
  - EYE HAEMORRHAGE [None]
  - RETINAL INJURY [None]
  - LACRIMATION INCREASED [None]
  - OCULAR DISCOMFORT [None]
